FAERS Safety Report 5929369-3 (Version None)
Quarter: 2008Q3

REPORT INFORMATION
  Report Type: 
  Country: None (occurrence: None)
  Receive Date: 20080924
  Receipt Date: 20071017
  Transmission Date: 20090109
  Serious: Yes (Other)
  Sender: FDA-Public Use
  Company Number: US-WYE-H00728007

PATIENT

DRUGS (1)
  1. RAPAMUNE [Suspect]
     Indication: RENAL TRANSPLANT

REACTIONS (4)
  - DIABETES MELLITUS [None]
  - PNEUMONITIS [None]
  - PROTEINURIA [None]
  - THROMBOTIC THROMBOCYTOPENIC PURPURA [None]
